FAERS Safety Report 9200073 (Version 1)
Quarter: 2013Q1

REPORT INFORMATION
  Report Type: Spontaneous
  Country: US (occurrence: US)
  Receive Date: 20130329
  Receipt Date: 20130329
  Transmission Date: 20140127
  Serious: No
  Sender: FDA-Public Use
  Company Number: US-009507513-1303USA013811

PATIENT
  Sex: Male

DRUGS (1)
  1. DORZOLAMIDE HYDROCHLORIDE [Suspect]
     Indication: BLINDNESS
     Dosage: 6 DF, TID
     Route: 031
     Dates: start: 201210

REACTIONS (3)
  - Drug prescribing error [Unknown]
  - Product packaging quantity issue [Unknown]
  - No adverse event [Unknown]
